FAERS Safety Report 15106709 (Version 3)
Quarter: 2018Q4

REPORT INFORMATION
  Report Type: Spontaneous
  Country: US (occurrence: US)
  Receive Date: 20180704
  Receipt Date: 20181022
  Transmission Date: 20190204
  Serious: Yes (Other)
  Sender: FDA-Public Use
  Company Number: US-SA-2018SA178039

PATIENT
  Sex: Female
  Weight: 80.73 kg

DRUGS (1)
  1. KEVZARA [Suspect]
     Active Substance: SARILUMAB
     Indication: RHEUMATOID ARTHRITIS
     Dosage: 1.14 ML, QOW
     Route: 058
     Dates: start: 20180420

REACTIONS (3)
  - Drug ineffective [Unknown]
  - Diabetes mellitus [Unknown]
  - Rheumatoid arthritis [Unknown]
